FAERS Safety Report 13632426 (Version 1)
Quarter: 2017Q2

REPORT INFORMATION
  Report Type: Spontaneous
  Country: US (occurrence: US)
  Receive Date: 20170531
  Receipt Date: 20170531
  Transmission Date: 20170830
  Serious: No
  Sender: FDA-Public Use
  Company Number: US-ASTELLAS-1458950

PATIENT
  Sex: Male

DRUGS (6)
  1. HYDROCORTISONE. [Concomitant]
     Active Substance: HYDROCORTISONE
  2. SEROQUEL [Concomitant]
     Active Substance: QUETIAPINE FUMARATE
  3. LAMICTAL [Concomitant]
     Active Substance: LAMOTRIGINE
  4. KEPPRA [Concomitant]
     Active Substance: LEVETIRACETAM
  5. OXYCODONE [Concomitant]
     Active Substance: OXYCODONE
  6. TARCEVA [Suspect]
     Active Substance: ERLOTINIB HYDROCHLORIDE
     Indication: LUNG NEOPLASM MALIGNANT
     Route: 048
     Dates: start: 20131108

REACTIONS (1)
  - Rash generalised [Unknown]
